FAERS Safety Report 13142246 (Version 1)
Quarter: 2017Q1

REPORT INFORMATION
  Report Type: Spontaneous
  Country: HU (occurrence: HU)
  Receive Date: 20170124
  Receipt Date: 20170124
  Transmission Date: 20170428
  Serious: Yes (Other)
  Sender: FDA-Public Use
  Company Number: HU-HQ SPECIALTY-HU-2017INT000014

PATIENT
  Sex: Female

DRUGS (3)
  1. CISPLATIN. [Suspect]
     Active Substance: CISPLATIN
     Indication: OVARIAN CANCER METASTATIC
     Dosage: UNK
     Dates: start: 201201
  2. ETOPOSIDE. [Suspect]
     Active Substance: ETOPOSIDE
     Indication: OVARIAN CANCER METASTATIC
     Dosage: UNK
     Dates: start: 201201
  3. IFOSFAMIDE. [Suspect]
     Active Substance: IFOSFAMIDE
     Indication: OVARIAN CANCER METASTATIC
     Dosage: UNK
     Dates: start: 201201

REACTIONS (6)
  - Thrombocytopenic purpura [Unknown]
  - Nausea [Unknown]
  - Diarrhoea [Unknown]
  - Neutropenia [Unknown]
  - Abdominal pain [Unknown]
  - Malaise [Unknown]

NARRATIVE: CASE EVENT DATE: 2012
